FAERS Safety Report 13855177 (Version 2)
Quarter: 2017Q3

REPORT INFORMATION
  Report Type: Spontaneous
  Country: US (occurrence: US)
  Receive Date: 20170810
  Receipt Date: 20170918
  Transmission Date: 20171127
  Serious: Yes (Death)
  Sender: FDA-Public Use
  Company Number: US-FRESENIUS MEDICAL CARE RENAL THERAPIES GROUP-FMC-1708-000832

PATIENT
  Age: 81 Year
  Sex: Female

DRUGS (14)
  1. TUMS [Concomitant]
     Active Substance: CALCIUM CARBONATE
  2. IRON [Concomitant]
     Active Substance: IRON
     Route: 048
  3. ATORVASTATIN [Concomitant]
     Active Substance: ATORVASTATIN
  4. PANTOPRAZOLE [Concomitant]
     Active Substance: PANTOPRAZOLE
  5. VITAMIN D [Concomitant]
     Active Substance: CHOLECALCIFEROL
  6. BUMEX [Concomitant]
     Active Substance: BUMETANIDE
  7. FERROUS SULFATE. [Concomitant]
     Active Substance: FERROUS SULFATE
  8. SIMETHICONE (DIMETHICONE) [Concomitant]
     Active Substance: DIMETHICONE
  9. ALLOPURINOL. [Concomitant]
     Active Substance: ALLOPURINOL
  10. LEVEMIR [Concomitant]
     Active Substance: INSULIN DETEMIR
  11. CARVEDILOL. [Concomitant]
     Active Substance: CARVEDILOL
  12. LEVOTHYROXINE. [Concomitant]
     Active Substance: LEVOTHYROXINE
  13. DELFLEX WITH DEXTROSE 2.5% LOW MAGNESIUM LOW CALCIUM [Suspect]
     Active Substance: CALCIUM CHLORIDE\DEXTROSE\MAGNESIUM CHLORIDE\SODIUM CHLORIDE\SODIUM LACTATE
     Indication: END STAGE RENAL DISEASE
     Route: 033
     Dates: start: 20150430
  14. CALCIUM ACETATE. [Concomitant]
     Active Substance: CALCIUM ACETATE

REACTIONS (1)
  - Cardio-respiratory arrest [Fatal]

NARRATIVE: CASE EVENT DATE: 20170716
